FAERS Safety Report 10399031 (Version 1)
Quarter: 2014Q3

REPORT INFORMATION
  Report Type: Report from Study
  Country: BR (occurrence: BR)
  Receive Date: 20140821
  Receipt Date: 20140821
  Transmission Date: 20150326
  Serious: Yes (Hospitalization, Other)
  Sender: FDA-Public Use
  Company Number: PHHY2014BR102454

PATIENT
  Age: 77 Year
  Sex: Female

DRUGS (4)
  1. FLUTICASONE W/SALMETEROL [Concomitant]
     Active Substance: FLUTICASONE PROPIONATE\SALMETEROL XINAFOATE
     Dosage: 1 DF, PER DAY
  2. TIOTROPIUM [Concomitant]
     Active Substance: TIOTROPIUM
     Dosage: 5 UG, PER DAY
  3. SERTRALINE [Suspect]
     Active Substance: SERTRALINE HYDROCHLORIDE
     Indication: DEPRESSION
  4. SERTRALINE [Suspect]
     Active Substance: SERTRALINE HYDROCHLORIDE
     Indication: ANXIETY
     Dosage: 1 DF, QD
     Route: 065

REACTIONS (5)
  - Chronic obstructive pulmonary disease [Recovering/Resolving]
  - Left ventricular dysfunction [Recovering/Resolving]
  - Depressive symptom [Recovering/Resolving]
  - Infection [Recovering/Resolving]
  - Dyspnoea [Recovering/Resolving]
